FAERS Safety Report 13290444 (Version 1)
Quarter: 2017Q1

REPORT INFORMATION
  Report Type: Report from Study
  Country: None (occurrence: BR)
  Receive Date: 20170302
  Receipt Date: 20170302
  Transmission Date: 20170428
  Serious: Yes (Hospitalization, Other)
  Sender: FDA-Public Use
  Company Number: BR-ABBVIE-17P-020-1891896-00

PATIENT
  Age: 64 Year
  Sex: Female
  Weight: 77 kg

DRUGS (26)
  1. NATRILIX [Concomitant]
     Active Substance: INDAPAMIDE
     Indication: BLOOD PRESSURE ABNORMAL
  2. SIMVASTATIN. [Concomitant]
     Active Substance: SIMVASTATIN
     Indication: BLOOD CHOLESTEROL ABNORMAL
  3. AAS INFANTIL [Concomitant]
     Active Substance: ASPIRIN
     Indication: PROPHYLAXIS
     Route: 048
     Dates: start: 2014
  4. AAS INFANTIL [Concomitant]
     Active Substance: ASPIRIN
     Indication: ANTICOAGULANT THERAPY
  5. BRIMONIDINE TARTRATE. [Concomitant]
     Active Substance: BRIMONIDINE TARTRATE
     Indication: PROPHYLAXIS
     Dosage: FORM OF ADMINISTRATION: LIQUID
     Route: 047
     Dates: start: 2015
  6. BRIMONIDINE TARTRATE. [Concomitant]
     Active Substance: BRIMONIDINE TARTRATE
     Indication: GASTRIC DISORDER
  7. HUMIRA [Suspect]
     Active Substance: ADALIMUMAB
     Dosage: MAINTENANCE DOSE
     Route: 058
     Dates: end: 20161204
  8. OMEPRAZOLE. [Concomitant]
     Active Substance: OMEPRAZOLE
     Indication: GASTRIC DISORDER
  9. NATRILIX [Concomitant]
     Active Substance: INDAPAMIDE
     Indication: PROPHYLAXIS
     Route: 048
     Dates: start: 2015
  10. NATRILIX [Concomitant]
     Active Substance: INDAPAMIDE
     Indication: GASTRIC DISORDER
  11. AZOPT [Concomitant]
     Active Substance: BRINZOLAMIDE
     Indication: PROPHYLAXIS
     Dosage: FORM OF ADMINISTRATION: LIQUID
     Route: 047
     Dates: start: 2015
  12. VALSARTAN. [Concomitant]
     Active Substance: VALSARTAN
     Indication: PROPHYLAXIS
     Route: 048
     Dates: start: 2015
  13. VALSARTAN. [Concomitant]
     Active Substance: VALSARTAN
     Indication: GASTRIC DISORDER
  14. SIMVASTATIN. [Concomitant]
     Active Substance: SIMVASTATIN
     Indication: GASTRIC DISORDER
  15. AAS INFANTIL [Concomitant]
     Active Substance: ASPIRIN
     Indication: GASTRIC DISORDER
  16. OMEPRAZOLE. [Concomitant]
     Active Substance: OMEPRAZOLE
     Indication: PROPHYLAXIS
     Route: 048
     Dates: start: 2014
  17. METFORMIN HYDROCHLORIDE. [Concomitant]
     Active Substance: METFORMIN HYDROCHLORIDE
     Indication: GASTRIC DISORDER
  18. HUMIRA [Suspect]
     Active Substance: ADALIMUMAB
     Indication: CROHN^S DISEASE
     Dosage: LOADING DOSE
     Route: 058
     Dates: start: 20130105, end: 20130105
  19. OMEPRAZOLE. [Concomitant]
     Active Substance: OMEPRAZOLE
     Indication: ABDOMINAL PAIN UPPER
  20. VALSARTAN. [Concomitant]
     Active Substance: VALSARTAN
     Indication: BLOOD PRESSURE ABNORMAL
  21. METFORMIN HYDROCHLORIDE. [Concomitant]
     Active Substance: METFORMIN HYDROCHLORIDE
     Indication: PROPHYLAXIS
     Route: 048
     Dates: start: 2014
  22. AZOPT [Concomitant]
     Active Substance: BRINZOLAMIDE
     Indication: GLAUCOMA
  23. AZOPT [Concomitant]
     Active Substance: BRINZOLAMIDE
     Indication: GASTRIC DISORDER
  24. SIMVASTATIN. [Concomitant]
     Active Substance: SIMVASTATIN
     Indication: PROPHYLAXIS
     Route: 048
     Dates: start: 2014
  25. METFORMIN HYDROCHLORIDE. [Concomitant]
     Active Substance: METFORMIN HYDROCHLORIDE
     Indication: BLOOD CHOLESTEROL ABNORMAL
  26. BRIMONIDINE TARTRATE. [Concomitant]
     Active Substance: BRIMONIDINE TARTRATE
     Indication: GLAUCOMA

REACTIONS (4)
  - Anaemia [Recovered/Resolved]
  - Diverticulitis [Recovered/Resolved]
  - Large intestinal haemorrhage [Recovered/Resolved]
  - Haemorrhage [Recovered/Resolved]

NARRATIVE: CASE EVENT DATE: 20170110
